FAERS Safety Report 5753739-X (Version None)
Quarter: 2008Q2

REPORT INFORMATION
  Report Type: 
  Country: None (occurrence: None)
  Receive Date: 20080530
  Receipt Date: 20080520
  Transmission Date: 20081010
  Serious: Yes (Other)
  Sender: FDA-Public Use
  Company Number: CA-JNJFOC-20080501069

PATIENT
  Sex: Male
  Weight: 26.76 kg

DRUGS (2)
  1. CHILDRENS MOTRIN BUBBLE GUM [Suspect]
     Route: 048
  2. CHILDRENS MOTRIN BUBBLE GUM [Suspect]
     Indication: ARTHRALGIA
     Route: 048

REACTIONS (5)
  - COLOUR BLINDNESS [None]
  - DIPLOPIA [None]
  - DRY EYE [None]
  - HEADACHE [None]
  - VISION BLURRED [None]
